FAERS Safety Report 4704264-6 (Version None)
Quarter: 2005Q2

REPORT INFORMATION
  Report Type: 
  Country: None (occurrence: None)
  Receive Date: 20050630
  Receipt Date: 20050620
  Transmission Date: 20051028
  Serious: Yes (Life-Threatening, Hospitalization, Other)
  Sender: FDA-Public Use
  Company Number: 200515175US

PATIENT
  Sex: Female
  Weight: 76.2 kg

DRUGS (17)
  1. ARAVA [Suspect]
     Indication: RHEUMATOID ARTHRITIS
     Dates: end: 20050603
  2. NEURONTIN [Concomitant]
  3. ELEVAL [Concomitant]
  4. HYDROCHLOROTHIAZIDE [Concomitant]
  5. SYNTHROID [Concomitant]
  6. ACYCLOVIR [Concomitant]
  7. PLAQUENIL [Concomitant]
  8. POTASSIUM CHLORIDE [Concomitant]
  9. ASPIRIN [Concomitant]
     Dosage: DOSE: UNK
  10. MULTIVITAMINS, PLAIN [Concomitant]
     Dosage: DOSE: UNK
  11. OSCAL [Concomitant]
     Dosage: DOSE: UNK
  12. ATIVAN [Concomitant]
  13. DARVOCET-N 100 [Concomitant]
     Dosage: DOSE: 100/650
  14. AVALIDE [Concomitant]
     Dosage: DOSE: 150.12.5
  15. CELEBREX [Concomitant]
  16. ALLEGRA [Concomitant]
  17. MIRALAX [Concomitant]
     Dosage: DOSE: UNK

REACTIONS (8)
  - ACUTE RESPIRATORY DISTRESS SYNDROME [None]
  - ANOREXIA [None]
  - CARDIOMEGALY [None]
  - DYSPNOEA EXERTIONAL [None]
  - LUNG INFILTRATION [None]
  - PULMONARY OEDEMA [None]
  - PYREXIA [None]
  - RESPIRATORY FAILURE [None]
